FAERS Safety Report 5618733-8 (Version None)
Quarter: 2008Q1

REPORT INFORMATION
  Report Type: 
  Country: None (occurrence: None)
  Receive Date: 20080207
  Receipt Date: 20080129
  Transmission Date: 20080703
  Serious: Yes (Hospitalization, Other)
  Sender: FDA-Public Use
  Company Number: SV-ABBOTT-08P-050-0434439-00

PATIENT
  Sex: Female
  Weight: 65.83 kg

DRUGS (3)
  1. HUMIRA [Suspect]
     Indication: RHEUMATOID ARTHRITIS
     Route: 058
     Dates: start: 20070710, end: 20071215
  2. LEFLUNOMIDE [Concomitant]
     Indication: ANTIINFLAMMATORY THERAPY
     Route: 048
  3. PREDNISONE TAB [Concomitant]
     Indication: ANTIINFLAMMATORY THERAPY
     Route: 048

REACTIONS (2)
  - ANAEMIA [None]
  - HAEMORRHOIDAL HAEMORRHAGE [None]
